FAERS Safety Report 9795546 (Version 1)
Quarter: 2014Q1

REPORT INFORMATION
  Report Type: Spontaneous
  Country: US (occurrence: US)
  Receive Date: 20140103
  Receipt Date: 20140103
  Transmission Date: 20141002
  Serious: Yes (Hospitalization)
  Sender: FDA-Public Use
  Company Number: US-009507513-1401USA000168

PATIENT
  Sex: Female

DRUGS (1)
  1. NITRO-DUR [Suspect]
     Indication: CHEST PAIN
     Dosage: 0.8 MG, QD, 1 PATCH EVERY MORNING, REMOVE EVERY EVENING, DISK 0.1
     Route: 062
     Dates: start: 2007

REACTIONS (1)
  - Chest pain [Unknown]
